FAERS Safety Report 5350833-2 (Version None)
Quarter: 2007Q2

REPORT INFORMATION
  Report Type: 
  Country: None (occurrence: None)
  Receive Date: 20070606
  Receipt Date: 20070606
  Transmission Date: 20071010
  Serious: Yes (Other)
  Sender: FDA-Public Use
  Company Number: None

PATIENT
  Age: 4 Year
  Sex: Female
  Weight: 22.2263 kg

DRUGS (1)
  1. LISTERINE AGENT COOL BLUE PFIZER CONSUMER HEALTHCARE [Suspect]
     Indication: DENTAL DISORDER PROPHYLAXIS
     Dosage: 10ML 2X A DAY PO
     Route: 048
     Dates: start: 20070101, end: 20070414

REACTIONS (3)
  - ASTHMA [None]
  - GASTRIC DISORDER [None]
  - PHARYNGITIS [None]
